FAERS Safety Report 23036003 (Version 2)
Quarter: 2023Q4

REPORT INFORMATION
  Report Type: Spontaneous
  Country: US (occurrence: US)
  Receive Date: 20231006
  Receipt Date: 20231222
  Transmission Date: 20240110
  Serious: No
  Sender: FDA-Public Use
  Company Number: US-ABBVIE-5434460

PATIENT
  Age: 82 Year
  Sex: Male
  Weight: 80.285 kg

DRUGS (3)
  1. IMBRUVICA [Suspect]
     Active Substance: IBRUTINIB
     Indication: Product used for unknown indication
     Dosage: TAKE 1 TABLET BY MOUTH ONCE DAILY. TABLET SHOULD BE TAKEN?WITH A GLASS OF WATER
     Route: 048
     Dates: start: 20230824
  2. CIPRO [Concomitant]
     Active Substance: CIPROFLOXACIN HYDROCHLORIDE
     Indication: Product used for unknown indication
  3. FISH OIL [Concomitant]
     Active Substance: FISH OIL
     Indication: Product used for unknown indication

REACTIONS (1)
  - Fatigue [Recovered/Resolved]

NARRATIVE: CASE EVENT DATE: 20230911
